FAERS Safety Report 7207235-3 (Version None)
Quarter: 2010Q4

REPORT INFORMATION
  Report Type: 
  Country: None (occurrence: None)
  Receive Date: 20101230
  Receipt Date: 20101230
  Transmission Date: 20110411
  Serious: Yes (Other)
  Sender: FDA-Public Use
  Company Number: None

PATIENT
  Age: 30 Year
  Sex: Female
  Weight: 58.0604 kg

DRUGS (7)
  1. CYCLOBENZAPRINE [Suspect]
     Indication: JOINT INJURY
     Dosage: 5MG 1 PER NIGHT PO
     Route: 048
     Dates: start: 20101001
  2. CYCLOBENZAPRINE [Suspect]
     Indication: MUSCLE SPASMS
     Dosage: 5MG 1 PER NIGHT PO
     Route: 048
     Dates: start: 20101228, end: 20101229
  3. IBUPROFEN [Concomitant]
  4. FLEXERIL [Concomitant]
  5. PROZAC [Concomitant]
  6. ZOLOFT [Concomitant]
  7. PAXIL [Concomitant]

REACTIONS (4)
  - ANXIETY [None]
  - DEPRESSION [None]
  - FEELING ABNORMAL [None]
  - SOMNOLENCE [None]
